FAERS Safety Report 12796991 (Version 15)
Quarter: 2017Q4

REPORT INFORMATION
  Report Type: Report from Study
  Country: US (occurrence: US)
  Receive Date: 20160929
  Receipt Date: 20171227
  Transmission Date: 20180320
  Serious: Yes (Hospitalization)
  Sender: FDA-Public Use
  Company Number: US-ACTELION-A-US2016-142736

PATIENT
  Age: 76 Year
  Sex: Male
  Weight: 74.83 kg

DRUGS (7)
  1. OPSUMIT [Suspect]
     Active Substance: MACITENTAN
     Indication: PULMONARY ARTERIAL HYPERTENSION
     Dosage: 10 MG, QD
     Route: 048
     Dates: start: 20160523
  2. SILDENAFIL. [Concomitant]
     Active Substance: SILDENAFIL
  3. VELETRI [Suspect]
     Active Substance: EPOPROSTENOL
     Indication: PULMONARY ARTERIAL HYPERTENSION
     Dosage: 22 NG/KG, PER MIN
     Route: 042
  4. VELETRI [Suspect]
     Active Substance: EPOPROSTENOL
     Dosage: 8 NG/KG/MIN
     Route: 042
  5. VELETRI [Suspect]
     Active Substance: EPOPROSTENOL
     Dosage: 20 NG/KG, PER MIN
     Route: 042
  6. OXYGEN. [Concomitant]
     Active Substance: OXYGEN
     Dosage: 7 L/MIN, UNK
  7. VELETRI [Suspect]
     Active Substance: EPOPROSTENOL
     Dosage: 6.5 NG/KG, PER MIN
     Route: 042
     Dates: start: 20160919

REACTIONS (24)
  - Rhinorrhoea [Unknown]
  - Rash [Unknown]
  - Catheter site inflammation [Unknown]
  - Oxygen therapy [Unknown]
  - Oxygen saturation decreased [Unknown]
  - Pain [Unknown]
  - Diarrhoea [Unknown]
  - Fluid retention [Unknown]
  - Chills [Unknown]
  - Catheter site dermatitis [Unknown]
  - Device leakage [Unknown]
  - Flushing [Unknown]
  - Dyspnoea [Unknown]
  - Pain in jaw [Unknown]
  - Pain in extremity [Unknown]
  - Drug hypersensitivity [Unknown]
  - Catheter site scab [Unknown]
  - Nausea [Recovered/Resolved]
  - Headache [Unknown]
  - Seasonal allergy [Unknown]
  - Catheter site erythema [Unknown]
  - Fatigue [Unknown]
  - Tooth extraction [Recovered/Resolved]
  - Influenza like illness [Unknown]

NARRATIVE: CASE EVENT DATE: 20170321
